FAERS Safety Report 15401685 (Version 15)
Quarter: 2024Q1

REPORT INFORMATION
  Report Type: Spontaneous
  Country: US (occurrence: US)
  Receive Date: 20180919
  Receipt Date: 20240206
  Transmission Date: 20240410
  Serious: Yes (Other)
  Sender: FDA-Public Use
  Company Number: US-PFIZER INC-2018374935

PATIENT
  Age: 66 Year
  Sex: Female

DRUGS (2)
  1. XELJANZ XR [Suspect]
     Active Substance: TOFACITINIB CITRATE
     Dosage: 11 MG, 1X/DAY (IN THE MORNING)
     Route: 048
     Dates: start: 201606
  2. PRAVASTATIN [Concomitant]
     Active Substance: PRAVASTATIN
     Indication: Blood cholesterol abnormal
     Dosage: UNK

REACTIONS (15)
  - Muscle rupture [Unknown]
  - Pneumonia [Unknown]
  - Meniere^s disease [Unknown]
  - Respiratory tract infection [Unknown]
  - Bronchitis [Unknown]
  - Cough [Unknown]
  - Immune system disorder [Unknown]
  - Upper respiratory tract infection [Unknown]
  - Vitamin D deficiency [Unknown]
  - Influenza [Unknown]
  - COVID-19 [Unknown]
  - Herpes zoster [Unknown]
  - Arthralgia [Recovered/Resolved]
  - Product dose omission issue [Unknown]
  - Prescription drug used without a prescription [Unknown]
